FAERS Safety Report 4523284-8 (Version None)
Quarter: 2004Q4

REPORT INFORMATION
  Report Type: 
  Country: None (occurrence: None)
  Receive Date: 20041210
  Receipt Date: 20041129
  Transmission Date: 20050328
  Serious: Yes (Hospitalization, Other)
  Sender: FDA-Public Use
  Company Number: CA-JNJFOC-20040301259

PATIENT
  Sex: Female

DRUGS (8)
  1. INFLIXIMAB [Suspect]
     Route: 042
  2. INFLIXIMAB [Suspect]
     Route: 042
  3. INFLIXIMAB [Suspect]
     Route: 042
  4. PLACEBO [Suspect]
     Route: 042
  5. METHOTREXATE [Concomitant]
  6. FOLIC ACID [Concomitant]
  7. FELDENE [Concomitant]
  8. NEXIUM [Concomitant]

REACTIONS (21)
  - ADENOCARCINOMA PANCREAS [None]
  - BACK PAIN [None]
  - BLOOD CREATININE DECREASED [None]
  - BRONCHITIS [None]
  - DIZZINESS [None]
  - FAECES DISCOLOURED [None]
  - FLATULENCE [None]
  - HAEMOGLOBIN INCREASED [None]
  - HEPATIC LESION [None]
  - HEPATIC STEATOSIS [None]
  - HYPERSENSITIVITY [None]
  - INFLUENZA [None]
  - INFUSION RELATED REACTION [None]
  - INJECTION SITE OEDEMA [None]
  - LIVER DISORDER [None]
  - MARKEDLY REDUCED DIETARY INTAKE [None]
  - METASTASES TO LUNG [None]
  - PANCREATIC CARCINOMA METASTATIC [None]
  - PLATELET COUNT DECREASED [None]
  - TENDONITIS [None]
  - VASCULAR CALCIFICATION [None]
